FAERS Safety Report 8491367-6 (Version None)
Quarter: 2012Q3

REPORT INFORMATION
  Report Type: 
  Country: None (occurrence: None)
  Receive Date: 20120706
  Receipt Date: 20120704
  Transmission Date: 20120928
  Serious: Yes (Other)
  Sender: FDA-Public Use
  Company Number: PHHY2012JP055776

PATIENT
  Age: 75 Year
  Sex: Female

DRUGS (2)
  1. CHEMOTHERAPEUTICS NOS [Concomitant]
  2. ZOLEDRONIC ACID [Suspect]
     Indication: MULTIPLE MYELOMA
     Route: 041

REACTIONS (2)
  - OSTEONECROSIS OF JAW [None]
  - ORAL INFECTION [None]
